FAERS Safety Report 25905881 (Version 2)
Quarter: 2025Q4

REPORT INFORMATION
  Report Type: Other
  Country: CN (occurrence: CN)
  Receive Date: 20251010
  Receipt Date: 20251222
  Transmission Date: 20260118
  Serious: Yes (Hospitalization, Other)
  Sender: CHIA TAI TIANQING PHARMACEUTICAL GROUP
  Company Number: None

PATIENT
  Age: 67 Year
  Sex: Female
  Weight: 42.0 kg

DRUGS (1)
  1. ERIBULIN MESYLATE [Suspect]
     Active Substance: ERIBULIN MESYLATE
     Indication: Breast cancer
     Dosage: 1.50MG,QD
     Dates: start: 20250922, end: 20250922

REACTIONS (1)
  - Myelosuppression [Recovering/Resolving]

NARRATIVE: CASE EVENT DATE: 20250923
